FAERS Safety Report 12247165 (Version 1)
Quarter: 2016Q2

REPORT INFORMATION
  Report Type: Spontaneous
  Country: US (occurrence: US)
  Receive Date: 20160407
  Receipt Date: 20160407
  Transmission Date: 20160815
  Serious: No
  Sender: FDA-Public Use
  Company Number: US-PRINSTON PHARMACEUTICAL INC.-2015PRN00085

PATIENT
  Sex: Male
  Weight: 108.84 kg

DRUGS (5)
  1. BENAZEPRIL [Suspect]
     Active Substance: BENAZEPRIL HYDROCHLORIDE
     Dosage: UNK, 2X/DAY
  2. BENAZEPRIL [Suspect]
     Active Substance: BENAZEPRIL HYDROCHLORIDE
     Indication: INCONTINENCE
     Dosage: UNK, 1X/DAY
  3. UNSPECIFIED BLOOD PRESSURE MEDICATION(S) [Concomitant]
  4. COUMADIN [Concomitant]
     Active Substance: WARFARIN SODIUM
     Indication: ATRIAL FIBRILLATION
     Dosage: 5 MG, 5X/WEEK
  5. COUMADIN [Concomitant]
     Active Substance: WARFARIN SODIUM
     Dosage: 2.5 MG, 2X/WEEK

REACTIONS (2)
  - Urinary incontinence [Unknown]
  - Drug ineffective for unapproved indication [Unknown]
